FAERS Safety Report 12085527 (Version 4)
Quarter: 2017Q3

REPORT INFORMATION
  Report Type: Report from Study
  Country: CA (occurrence: CA)
  Receive Date: 20160217
  Receipt Date: 20170918
  Transmission Date: 20171127
  Serious: Yes (Other)
  Sender: FDA-Public Use
  Company Number: CA-PFIZER INC-2013085537

PATIENT
  Age: 65 Year
  Sex: Female
  Weight: 80 kg

DRUGS (38)
  1. ENBREL [Suspect]
     Active Substance: ETANERCEPT
     Indication: RHEUMATOID ARTHRITIS
     Dosage: 50 MG/ML, QWK
     Dates: start: 20130207
  2. DIOVAN [Concomitant]
     Active Substance: VALSARTAN
     Dosage: 160 MG, 1 TABLET
  3. RISEDRONATE [Concomitant]
     Active Substance: RISEDRONATE SODIUM
     Dosage: UNK UNK, QWK
  4. BENTYL [Concomitant]
     Active Substance: DICYCLOMINE HYDROCHLORIDE
     Dosage: 20 MG, TID
  5. FIORINAL [Concomitant]
     Active Substance: ASPIRIN\BUTALBITAL\CAFFEINE
     Dosage: 50 MG, AS NECESSARY
  6. BENTYL [Concomitant]
     Active Substance: DICYCLOMINE HYDROCHLORIDE
     Dosage: 20 MG, TID
  7. TRIFLUOPERAZINE [Concomitant]
     Active Substance: TRIFLUOPERAZINE\TRIFLUOPERAZINE HYDROCHLORIDE
     Indication: GASTROINTESTINAL PAIN
     Dosage: 2 MG, QHS
  8. CIDROXAL [Concomitant]
     Dosage: FOR EYES
  9. NIFEDIPINE. [Concomitant]
     Active Substance: NIFEDIPINE
     Dosage: 30 MG, QD
  10. OMEPRAZOLE. [Concomitant]
     Active Substance: OMEPRAZOLE
     Dosage: 20 MG, BID
  11. TERBUTALINE SULFATE. [Concomitant]
     Active Substance: TERBUTALINE SULFATE
     Dosage: 0.5 MG, UNK
  12. TENORMIN [Concomitant]
     Active Substance: ATENOLOL
     Dosage: UNK UNK, BID
  13. CYCLOBENZAPRINE. [Concomitant]
     Active Substance: CYCLOBENZAPRINE
     Dosage: 10 MG, QHS
  14. ACETYLSALICYLIC ACID [Concomitant]
     Active Substance: ASPIRIN
     Dosage: 50 MG, UNK
  15. DICYCLOMINE [Concomitant]
     Active Substance: DICYCLOMINE HYDROCHLORIDE
     Dosage: 20 MG, TID
  16. TRAMADOL HYDROCHLORIDE. [Concomitant]
     Active Substance: TRAMADOL HYDROCHLORIDE
     Dosage: 100 MG, TID
  17. LOSEC [Concomitant]
     Active Substance: OMEPRAZOLE
     Dosage: 20 MG, BID
  18. ADALAT CC [Concomitant]
     Active Substance: NIFEDIPINE
     Dosage: 120 MG, QD
  19. BRICANYL [Concomitant]
     Active Substance: TERBUTALINE SULFATE
     Dosage: 0.5 MG, AS NECESSARY
  20. TRIFLUOPERAZINE [Concomitant]
     Active Substance: TRIFLUOPERAZINE\TRIFLUOPERAZINE HYDROCHLORIDE
     Indication: GASTROINTESTINAL PAIN
  21. NASONEX [Concomitant]
     Active Substance: MOMETASONE FUROATE
     Dosage: UNK
  22. PREDNISOLONE. [Concomitant]
     Active Substance: PREDNISOLONE
     Dosage: UNK
     Route: 047
  23. SULFASALAZINE. [Suspect]
     Active Substance: SULFASALAZINE
     Indication: PAIN
     Dosage: UNK
  24. ARTHROTEC [Concomitant]
     Active Substance: DICLOFENAC SODIUM\MISOPROSTOL
     Dosage: 75-200MG BID
  25. FOLIC ACID. [Concomitant]
     Active Substance: FOLIC ACID
     Dosage: 5 MG, UNK
  26. VENLAFAXINE [Concomitant]
     Active Substance: VENLAFAXINE HYDROCHLORIDE
     Dosage: 37.5 MG, 1X/DAY
  27. TIMOLOL MALEATE. [Concomitant]
     Active Substance: TIMOLOL MALEATE
     Dosage: 5 MG, BOTH EYES EVERYDAY
     Route: 047
  28. BUTALBITAL [Concomitant]
     Active Substance: BUTALBITAL
     Dosage: 50 MG, UNK
  29. METHOTREXATE SODIUM. [Suspect]
     Active Substance: METHOTREXATE SODIUM
     Dosage: 0.8 MG, WEEKLY
  30. DICLOFENAC SODIUM AND MISOPROSTOL [Concomitant]
     Active Substance: DICLOFENAC SODIUM\MISOPROSTOL
     Dosage: UNK UNK, BID
  31. NIFEDIPINE. [Concomitant]
     Active Substance: NIFEDIPINE
     Dosage: 120 MG, QD
  32. TRAMACET [Concomitant]
     Active Substance: ACETAMINOPHEN\TRAMADOL
     Dosage: FOUR TABLETS DAILY
  33. TRAMADOL HYDROCHLORIDE. [Concomitant]
     Active Substance: TRAMADOL HYDROCHLORIDE
     Dosage: 100 MG, TID
  34. CAFFEINE. [Concomitant]
     Active Substance: CAFFEINE
     Dosage: 50 MG, UNK
  35. PHENACETIN [Concomitant]
     Active Substance: PHENACETIN
     Dosage: 50 MG, UNK
  36. XANAX [Concomitant]
     Active Substance: ALPRAZOLAM
     Dosage: 0.25 MG, UNK
  37. CIPROFLOXACIN. [Concomitant]
     Active Substance: CIPROFLOXACIN
     Dosage: UNK
     Route: 065
  38. VENLAFAXINE XR [Concomitant]
     Active Substance: VENLAFAXINE HYDROCHLORIDE
     Dosage: 150 MG, QD

REACTIONS (26)
  - Pain [Unknown]
  - Hiatus hernia [Unknown]
  - Migraine [Unknown]
  - Sinus headache [Unknown]
  - Tension headache [Unknown]
  - Thyroid neoplasm [Unknown]
  - Stress [Unknown]
  - Oesophageal haemorrhage [Unknown]
  - Gastric haemorrhage [Unknown]
  - Cataract [Unknown]
  - Loss of personal independence in daily activities [Unknown]
  - Tremor [Unknown]
  - Headache [Unknown]
  - Seizure [Unknown]
  - Somnolence [Unknown]
  - Anaemia [Unknown]
  - Bronchitis chronic [Unknown]
  - Gastrooesophageal reflux disease [Unknown]
  - Fibromyalgia [Unknown]
  - Blood iron decreased [Unknown]
  - Speech disorder [Unknown]
  - Fatigue [Unknown]
  - Hypertension [Unknown]
  - Skin odour abnormal [Unknown]
  - Rash [Unknown]
  - Gait inability [Unknown]

NARRATIVE: CASE EVENT DATE: 201302
